FAERS Safety Report 6531627-9 (Version None)
Quarter: 2010Q1

REPORT INFORMATION
  Report Type: 
  Country: None (occurrence: None)
  Receive Date: 20100108
  Receipt Date: 20091229
  Transmission Date: 20100710
  Serious: Yes (Hospitalization)
  Sender: FDA-Public Use
  Company Number: FR-PFIZER INC-2009315315

PATIENT
  Age: 83 Year
  Sex: Male

DRUGS (4)
  1. SUTENT [Suspect]
     Indication: RENAL CANCER METASTATIC
  2. AMLOR [Concomitant]
     Dosage: 5 MG, 1X/DAY
     Route: 048
     Dates: start: 20091224
  3. VASTAREL [Concomitant]
     Dosage: 70 MG, 1X/DAY
     Route: 048
     Dates: start: 20091224
  4. COZAAR [Concomitant]
     Dosage: 50 MG, 1X/DAY
     Route: 048
     Dates: start: 20091224

REACTIONS (5)
  - ANAEMIA [None]
  - DRUG TOXICITY [None]
  - PANCREATITIS [None]
  - STAPHYLOCOCCAL INFECTION [None]
  - THROMBOCYTOPENIA [None]
